FAERS Safety Report 25468451 (Version 3)
Quarter: 2025Q4

REPORT INFORMATION
  Report Type: Report from Study
  Country: JP (occurrence: JP)
  Receive Date: 20250623
  Receipt Date: 20251203
  Transmission Date: 20260118
  Serious: Yes (Death)
  Sender: SHIONOGI
  Company Number: JP-shionogi-202500006328

PATIENT
  Age: 60 Year
  Sex: Female
  Weight: 76 kg

DRUGS (23)
  1. CEFIDEROCOL [Suspect]
     Active Substance: CEFIDEROCOL
     Indication: Stenotrophomonas bacteraemia
     Route: 041
     Dates: start: 20240710, end: 20240717
  2. CEFIDEROCOL [Suspect]
     Active Substance: CEFIDEROCOL
     Indication: Stenotrophomonas maltophilia pneumonia
     Route: 041
     Dates: start: 20240718, end: 20240722
  3. TEICOPLANIN [Concomitant]
     Active Substance: TEICOPLANIN
     Indication: Stenotrophomonas bacteraemia
     Route: 065
     Dates: start: 20240626, end: 20240722
  4. TEICOPLANIN [Concomitant]
     Active Substance: TEICOPLANIN
     Indication: Stenotrophomonas maltophilia pneumonia
  5. MINOCYCLINE HYDROCHLORIDE [Concomitant]
     Active Substance: MINOCYCLINE HYDROCHLORIDE
     Indication: Stenotrophomonas bacteraemia
     Route: 065
     Dates: start: 20240626, end: 20240711
  6. MINOCYCLINE HYDROCHLORIDE [Concomitant]
     Active Substance: MINOCYCLINE HYDROCHLORIDE
     Indication: Stenotrophomonas maltophilia pneumonia
  7. SULFAMETHOXAZOLE\TRIMETHOPRIM [Concomitant]
     Active Substance: SULFAMETHOXAZOLE\TRIMETHOPRIM
     Indication: Stenotrophomonas bacteraemia
     Route: 065
     Dates: start: 20240628, end: 20240709
  8. SULFAMETHOXAZOLE\TRIMETHOPRIM [Concomitant]
     Active Substance: SULFAMETHOXAZOLE\TRIMETHOPRIM
     Indication: Stenotrophomonas maltophilia pneumonia
  9. CEFTAZIDIME [Concomitant]
     Active Substance: CEFTAZIDIME
     Indication: Stenotrophomonas bacteraemia
     Route: 065
     Dates: start: 20240628, end: 20240710
  10. CEFTAZIDIME [Concomitant]
     Active Substance: CEFTAZIDIME
     Indication: Stenotrophomonas maltophilia pneumonia
  11. METRONIDAZOLE [Concomitant]
     Active Substance: METRONIDAZOLE
     Indication: Stenotrophomonas bacteraemia
     Route: 065
     Dates: start: 20240630, end: 20240708
  12. METRONIDAZOLE [Concomitant]
     Active Substance: METRONIDAZOLE
     Indication: Stenotrophomonas maltophilia pneumonia
  13. AMBISOME [Concomitant]
     Active Substance: AMPHOTERICIN B
     Indication: Product used for unknown indication
     Route: 065
     Dates: start: 20240625, end: 20240722
  14. CYCLOSPORINE [Concomitant]
     Active Substance: CYCLOSPORINE
     Indication: Product used for unknown indication
     Route: 065
     Dates: start: 20240625, end: 20240722
  15. LANDIOLOL HYDROCHLORIDE [Concomitant]
     Active Substance: LANDIOLOL HYDROCHLORIDE
     Indication: Product used for unknown indication
     Route: 065
     Dates: start: 20240625, end: 20240709
  16. ACYCLOVIR [Concomitant]
     Active Substance: ACYCLOVIR
     Indication: Product used for unknown indication
     Route: 065
     Dates: start: 20240626, end: 20240722
  17. SOLU-CORTEF [Concomitant]
     Active Substance: HYDROCORTISONE SODIUM SUCCINATE
     Indication: Stenotrophomonas bacteraemia
     Route: 065
     Dates: start: 20240626, end: 20240722
  18. SOLU-CORTEF [Concomitant]
     Active Substance: HYDROCORTISONE SODIUM SUCCINATE
     Indication: Stenotrophomonas maltophilia pneumonia
  19. SOLVENTS [Concomitant]
     Indication: Stenotrophomonas bacteraemia
     Route: 065
     Dates: start: 20240626, end: 20240722
  20. SOLVENTS [Concomitant]
     Indication: Stenotrophomonas maltophilia pneumonia
  21. NOREPINEPHRINE BITARTRATE [Concomitant]
     Active Substance: NOREPINEPHRINE BITARTRATE
     Indication: Stenotrophomonas bacteraemia
     Route: 065
     Dates: start: 20240626, end: 20240722
  22. NOREPINEPHRINE BITARTRATE [Concomitant]
     Active Substance: NOREPINEPHRINE BITARTRATE
     Indication: Stenotrophomonas maltophilia pneumonia
  23. DILTIAZEM HYDROCHLORIDE [Concomitant]
     Active Substance: DILTIAZEM HYDROCHLORIDE
     Indication: Product used for unknown indication
     Route: 065
     Dates: start: 20240627, end: 20240710

REACTIONS (1)
  - Acute myeloid leukaemia [Fatal]
